FAERS Safety Report 4436140-0 (Version None)
Quarter: 2004Q3

REPORT INFORMATION
  Report Type: 
  Country: None (occurrence: None)
  Receive Date: 20040830
  Receipt Date: 20040820
  Transmission Date: 20050211
  Serious: Yes (Hospitalization)
  Sender: FDA-Public Use
  Company Number: US-JNJFOC-20040807567

PATIENT
  Sex: Female
  Weight: 64.41 kg

DRUGS (3)
  1. REMICADE [Suspect]
     Indication: CROHN'S DISEASE
     Dosage: 7 VIALS
     Route: 042
  2. ZOFRAN [Concomitant]
     Indication: NAUSEA
     Dosage: 1 TO 3 XDAY
  3. PHENERGAN HCL [Concomitant]
     Indication: NAUSEA
     Dosage: 1XDAY

REACTIONS (5)
  - BRONCHITIS [None]
  - NAUSEA [None]
  - SINUSITIS [None]
  - TREMOR [None]
  - VOMITING [None]
